FAERS Safety Report 21694184 (Version 1)
Quarter: 2022Q4

REPORT INFORMATION
  Report Type: Other
  Country: US (occurrence: None)
  Receive Date: 20221207
  Receipt Date: 20221207
  Transmission Date: 20230113
  Serious: Yes (Hospitalization, Other)
  Sender: FDA-Public Use
  Company Number: US-ROCHE-3230668

PATIENT
  Age: 70 Year
  Sex: Male

DRUGS (2)
  1. VABYSMO [Suspect]
     Active Substance: FARICIMAB-SVOA
     Indication: Neovascular age-related macular degeneration
     Dosage: RIGHT EYE ;ONGOING: YES
     Route: 065
  2. LUCENTIS [Suspect]
     Active Substance: RANIBIZUMAB
     Indication: Neovascular age-related macular degeneration
     Dosage: UNKNOWN
     Route: 065

REACTIONS (4)
  - Tumour haemorrhage [Unknown]
  - Bladder cancer [Unknown]
  - COVID-19 [Unknown]
  - Blindness unilateral [Not Recovered/Not Resolved]
